FAERS Safety Report 11230272 (Version 2)
Quarter: 2015Q3

REPORT INFORMATION
  Report Type: Spontaneous
  Country: DE (occurrence: DE)
  Receive Date: 20150701
  Receipt Date: 20150708
  Transmission Date: 20151125
  Serious: Yes (Hospitalization)
  Sender: FDA-Public Use
  Company Number: DE-AMGEN-DEUSP2015064126

PATIENT
  Sex: Female

DRUGS (20)
  1. PREDNISOLONE. [Suspect]
     Active Substance: PREDNISOLONE
     Indication: B-CELL LYMPHOMA
     Dosage: 100MG MILLIGRAM, 1 TIMES A DAY FOR 4 DAYS
     Route: 048
     Dates: start: 20150611, end: 20150614
  2. PEGFILGRASTIM [Suspect]
     Active Substance: PEGFILGRASTIM
     Indication: B-CELL LYMPHOMA
     Dosage: 6 MG MILLIGRAMS, 1 TIMES A DAY FOR 1 DAY
     Route: 058
     Dates: start: 20150612, end: 20150612
  3. HYDROMORPHONE [Concomitant]
     Active Substance: HYDROMORPHONE
     Indication: PAIN
     Dosage: 4 MG 1-0.5-1
     Route: 048
  4. RITUXIMAB [Suspect]
     Active Substance: RITUXIMAB
     Indication: B-CELL LYMPHOMA
     Dosage: 375 MG/M2 MILLIGRAM/SQ. METER, 1 TIMES A DAY FOR 1 DAY
     Route: 042
     Dates: start: 20150610, end: 20150610
  5. BISOPROLOL [Concomitant]
     Active Substance: BISOPROLOL
     Indication: HYPERTENSION
     Dosage: 25MG MILLIGRAM, 2 TIMES A DAY
     Route: 048
     Dates: start: 2015
  6. HYDROCHLORTHIAZID [Concomitant]
     Active Substance: HYDROCHLOROTHIAZIDE
     Indication: HYPERTENSION
     Dosage: 12.5MG MILLIGRAM, 1 TIMES A DAY
     Route: 048
     Dates: start: 2015
  7. DOXORUBICINE                       /00330901/ [Suspect]
     Active Substance: DOXORUBICIN
     Indication: B-CELL LYMPHOMA
     Dosage: 50 MG/M2 MILLIGRAM/SQ. METER, 1 TIMES A DAY FOR 1 DAY
     Route: 042
     Dates: start: 20150611, end: 20150611
  8. LEVOTHYROXINE SODIUM. [Concomitant]
     Active Substance: LEVOTHYROXINE SODIUM
     Indication: HYPOTHYROIDISM
     Dosage: 50MG MICROGRAM, 1 TIMES A DAY
     Route: 048
  9. METOCLOPRAMIDE. [Concomitant]
     Active Substance: METOCLOPRAMIDE
     Indication: CONSTIPATION PROPHYLAXIS
     Dosage: 10MG MILLIGRAM, 3 TIMES A DAY
     Route: 048
  10. VINCRISTINE [Suspect]
     Active Substance: VINCRISTINE
     Indication: B-CELL LYMPHOMA
     Dosage: 3.34MG MILLIGRAMS, 1 TIMES A DAY FOR 1 DAY
     Route: 042
     Dates: start: 20150611, end: 20150611
  11. FUROSEMIDE. [Concomitant]
     Active Substance: FUROSEMIDE
     Indication: HYPERTENSION
     Dosage: 20 MILLIGRAM, 2TIMES A DAY
     Route: 048
     Dates: start: 2015
  12. METAMIZOLE SODIUM [Concomitant]
     Active Substance: METAMIZOLE SODIUM
     Indication: PAIN
     Dosage: 30G GRAM, 3 TIMES A DAY
     Route: 048
  13. RAMIPRIL. [Concomitant]
     Active Substance: RAMIPRIL
     Indication: HYPERTENSION
     Dosage: 2.5MG MILLIGRAM, 1 TIMES A DAY
     Route: 048
     Dates: start: 2015
  14. AMITRIPTYLINE [Concomitant]
     Active Substance: AMITRIPTYLINE
     Indication: DEPRESSION
     Dosage: 25MG MILLIGRAM, 1 TIMES A DAY
     Route: 048
  15. PANTOPRAZOLE SODIUM. [Concomitant]
     Active Substance: PANTOPRAZOLE SODIUM
     Indication: GASTRITIS PROPHYLAXIS
     Dosage: 40MG MILLIGRAM, 2 TIMES A DAY
     Route: 048
  16. CYCLOPHOSPHAMIDE. [Suspect]
     Active Substance: CYCLOPHOSPHAMIDE
     Indication: B-CELL LYMPHOMA
     Dosage: 750 MG/M2 MILLIGRAM/SQ. METER, 1 TIMES A DAY FOR 1 DAY
     Route: 042
     Dates: start: 20150611, end: 20150611
  17. APIXABAN [Concomitant]
     Active Substance: APIXABAN
     Indication: THROMBOSIS PROPHYLAXIS
     Dosage: 5MG MILLIGRAM, 2 TIMES A DAY
     Route: 048
     Dates: start: 2015
  18. ALLOPURINOL. [Concomitant]
     Active Substance: ALLOPURINOL
     Indication: HYPERURICAEMIA
     Dosage: 100MG MILLIGRAM, 1 TIMES A DAY
     Route: 048
  19. COLECALCIFEROL [Concomitant]
     Active Substance: CHOLECALCIFEROL
     Indication: VITAMIN SUPPLEMENTATION
     Dosage: 20000IU INTERNATIONAL UNIT, 1 TIMES A DAY
     Route: 048
  20. MACROGOL W/POTASSIUM CHLORIDE/SODIU/06401201/ [Concomitant]
     Indication: CONSTIPATION
     Dosage: 1 PACH QD
     Route: 048

REACTIONS (2)
  - Bicytopenia [Recovered/Resolved]
  - Asthenia [Recovered/Resolved]

NARRATIVE: CASE EVENT DATE: 20150619
